FAERS Safety Report 26141903 (Version 1)
Quarter: 2025Q4

REPORT INFORMATION
  Report Type: Spontaneous
  Country: CA (occurrence: CA)
  Receive Date: 20251210
  Receipt Date: 20251210
  Transmission Date: 20260117
  Serious: Yes (Life-Threatening, Hospitalization, Other)
  Sender: REGENERON
  Company Number: CA-REGENERON PHARMACEUTICALS, INC.-2025-193381

PATIENT
  Age: 70 Year
  Sex: Female

DRUGS (1)
  1. LIBTAYO [Suspect]
     Active Substance: CEMIPLIMAB-RWLC
     Indication: Basal cell carcinoma
     Dosage: 350 MG, Q3W
     Route: 042

REACTIONS (3)
  - Diabetic ketoacidosis [Recovered/Resolved with Sequelae]
  - Hypothyroidism [Recovered/Resolved with Sequelae]
  - Type 1 diabetes mellitus [Recovered/Resolved with Sequelae]
